FAERS Safety Report 16026516 (Version 1)
Quarter: 2019Q1

REPORT INFORMATION
  Report Type: Spontaneous
  Country: US (occurrence: US)
  Receive Date: 20190302
  Receipt Date: 20190302
  Transmission Date: 20190418
  Serious: No
  Sender: FDA-Public Use
  Company Number: US-TARO-2018TAR00466

PATIENT
  Sex: Female

DRUGS (1)
  1. ENALAPRIL MALEATE TABLETS USP 5 MG [Suspect]
     Active Substance: ENALAPRIL MALEATE
     Dosage: UNK
     Dates: start: 201806

REACTIONS (2)
  - Pollakiuria [Not Recovered/Not Resolved]
  - Product substitution issue [Not Recovered/Not Resolved]

NARRATIVE: CASE EVENT DATE: 201806
